FAERS Safety Report 9797895 (Version 4)
Quarter: 2020Q1

REPORT INFORMATION
  Report Type: Report from Study
  Country: CO (occurrence: CO)
  Receive Date: 20140106
  Receipt Date: 20200309
  Transmission Date: 20200409
  Serious: Yes (Other)
  Sender: FDA-Public Use
  Company Number: PHHY2013CO113457

PATIENT
  Age: 58 Year
  Sex: Male
  Weight: 96 kg

DRUGS (3)
  1. GILENYA [Suspect]
     Active Substance: FINGOLIMOD HYDROCHLORIDE
     Dosage: 0.5 MG, QD
     Route: 048
     Dates: start: 20130605
  2. GILENYA [Suspect]
     Active Substance: FINGOLIMOD HYDROCHLORIDE
     Dosage: 0.5 MG, QD
     Route: 048
     Dates: start: 20131121
  3. GILENYA [Suspect]
     Active Substance: FINGOLIMOD HYDROCHLORIDE
     Indication: RELAPSING-REMITTING MULTIPLE SCLEROSIS
     Dosage: 0.5 MG, QOD
     Route: 048
     Dates: start: 20130329

REACTIONS (12)
  - White blood cell count decreased [Unknown]
  - Balanitis candida [Unknown]
  - Infection [Unknown]
  - Hyperglycaemia [Unknown]
  - Thyroid disorder [Unknown]
  - T-lymphocyte count decreased [Unknown]
  - Lymphocyte count decreased [Not Recovered/Not Resolved]
  - Hypertension [Unknown]
  - Prescribed underdose [Unknown]
  - Hypothyroidism [Not Recovered/Not Resolved]
  - Haemoglobin decreased [Not Recovered/Not Resolved]
  - Neutrophilia [Unknown]

NARRATIVE: CASE EVENT DATE: 20130509
